FAERS Safety Report 18397422 (Version 1)
Quarter: 2020Q4

REPORT INFORMATION
  Report Type: Spontaneous
  Country: US (occurrence: US)
  Receive Date: 20201018
  Receipt Date: 20201018
  Transmission Date: 20210114
  Serious: Yes (Hospitalization)
  Sender: FDA-Public Use
  Company Number: None

PATIENT
  Age: 29 Year
  Sex: Female

DRUGS (2)
  1. MULTIVITAMIN [Concomitant]
     Active Substance: VITAMINS
  2. HYLENEX RECOMBINANT [Suspect]
     Active Substance: HYALURONIDASE (HUMAN RECOMBINANT)
     Indication: SKIN COSMETIC PROCEDURE
     Route: 058
     Dates: start: 20180731

REACTIONS (6)
  - Deformity [None]
  - Product use in unapproved indication [None]
  - Eye injury [None]
  - Procedural complication [None]
  - Face injury [None]
  - Iatrogenic injury [None]

NARRATIVE: CASE EVENT DATE: 20180731
